FAERS Safety Report 13275531 (Version 2)
Quarter: 2017Q1

REPORT INFORMATION
  Report Type: Spontaneous
  Country: US (occurrence: US)
  Receive Date: 20170228
  Receipt Date: 20170302
  Transmission Date: 20170428
  Serious: No
  Sender: FDA-Public Use
  Company Number: US-BIOGEN-2010BI035777

PATIENT
  Sex: Female

DRUGS (1)
  1. TYSABRI [Suspect]
     Active Substance: NATALIZUMAB
     Indication: MULTIPLE SCLEROSIS
     Route: 042
     Dates: start: 20090731, end: 20140516

REACTIONS (8)
  - Musculoskeletal disorder [Unknown]
  - Drug ineffective [Not Recovered/Not Resolved]
  - Muscle spasticity [Unknown]
  - Agraphia [Unknown]
  - Thyroid disorder [Not Recovered/Not Resolved]
  - Treatment failure [Unknown]
  - Upper limb fracture [Unknown]
  - Gait disturbance [Not Recovered/Not Resolved]
